FAERS Safety Report 4818517-4 (Version None)
Quarter: 2005Q4

REPORT INFORMATION
  Report Type: 
  Country: None (occurrence: None)
  Receive Date: 20051101
  Receipt Date: 20051101
  Transmission Date: 20060501
  Serious: Yes (Death)
  Sender: FDA-Public Use
  Company Number: None

PATIENT
  Sex: Male
  Weight: 63.9 kg

DRUGS (4)
  1. INTERFERON ALPHA [Suspect]
     Indication: SMALL CELL LUNG CANCER STAGE UNSPECIFIED
     Dosage: SEE UNAGE
     Dates: start: 20050517, end: 20050525
  2. INTERFERON ALPHA [Suspect]
     Indication: SMALL CELL LUNG CANCER STAGE UNSPECIFIED
     Dosage: SEE UNAGE
     Dates: start: 20050517
  3. 13-CIS-RETONOOIC ACID [Suspect]
     Dosage: SEE IMAGE
     Dates: start: 20050517, end: 20050525
  4. PACLITAXEL [Suspect]
     Dosage: SEE IMAGE

REACTIONS (3)
  - HYPONATRAEMIA [None]
  - MALIGNANT NEOPLASM PROGRESSION [None]
  - SMALL CELL CARCINOMA [None]
